FAERS Safety Report 17300850 (Version 1)
Quarter: 2020Q1

REPORT INFORMATION
  Report Type: Spontaneous
  Country: IT (occurrence: IT)
  Receive Date: 20200122
  Receipt Date: 20200122
  Transmission Date: 20200409
  Serious: Yes (Hospitalization)
  Sender: FDA-Public Use
  Company Number: IT-PFIZER INC-2020028991

PATIENT
  Age: 67 Year
  Sex: Female

DRUGS (8)
  1. HIZENTRA [Concomitant]
     Active Substance: HUMAN IMMUNOGLOBULIN G
  2. ORAMORPH SR SUSTAINED RELEASE [Interacting]
     Active Substance: MORPHINE SULFATE
     Dosage: 20 MG, AS NEEDED
     Route: 048
  3. CYMBALTA [Interacting]
     Active Substance: DULOXETINE HYDROCHLORIDE
     Route: 048
     Dates: start: 20190101, end: 20191118
  4. OXYCONTIN [Interacting]
     Active Substance: OXYCODONE HYDROCHLORIDE
  5. LYRICA [Suspect]
     Active Substance: PREGABALIN
     Route: 048
     Dates: start: 20190101, end: 20191118
  6. TEGRETOL [Interacting]
     Active Substance: CARBAMAZEPINE
     Route: 048
     Dates: start: 20190101, end: 20191118
  7. HALCION [Concomitant]
     Active Substance: TRIAZOLAM
  8. LASIX [Concomitant]
     Active Substance: FUROSEMIDE

REACTIONS (2)
  - Drug interaction [Unknown]
  - Constipation [Recovering/Resolving]

NARRATIVE: CASE EVENT DATE: 20191118
